FAERS Safety Report 10755023 (Version 1)
Quarter: 2015Q1

REPORT INFORMATION
  Report Type: Spontaneous
  Country: NL (occurrence: NL)
  Receive Date: 20150202
  Receipt Date: 20150202
  Transmission Date: 20150721
  Serious: Yes (Other)
  Sender: FDA-Public Use
  Company Number: NL-TEVA-537332ISR

PATIENT
  Age: 70 Year
  Sex: Male

DRUGS (11)
  1. AZELASTINE NEUSSPRAY 1MG/ML [Concomitant]
     Dosage: 2 DOSAGE FORMS DAILY;
     Route: 045
  2. LEVOCETIRIZINE TABLET FO 5MG [Concomitant]
     Dosage: 5 MILLIGRAM DAILY;
     Route: 048
  3. ALENDRONINEZUUR TABLET 70MG (ALS NA-ZOUT-0-WATER) [Concomitant]
     Route: 048
  4. CICLESONIDE AEROSOL 160UG/DO [Concomitant]
     Route: 055
  5. CANDESARTAN TABLET  4MG [Concomitant]
     Route: 048
  6. TIOTROPIUM INHALATIECAPSULE 18UG [Concomitant]
     Dosage: 18 MICROGRAM DAILY;
     Route: 055
  7. BECLOMETASON/FORMOTEROL AEROSOL 100/6UG/DO [Concomitant]
     Dosage: 4 DOSAGE FORMS DAILY;
     Route: 055
  8. SIMVASTATINE TABLET 20MG [Concomitant]
     Dosage: 20 MILLIGRAM DAILY;
     Route: 048
  9. CHLOORTALIDON TABLET 25MG [Concomitant]
     Dosage: 25 MILLIGRAM DAILY;
     Route: 048
  10. MOMETASON NEUSSPRAY 50UG/DO [Concomitant]
     Dosage: 50 MICROGRAM DAILY;
     Route: 055
  11. AMOXICILLIN. [Suspect]
     Active Substance: AMOXICILLIN
     Indication: SINUSITIS
     Dosage: 1500 MILLIGRAM DAILY;
     Route: 048
     Dates: start: 20150119, end: 20150120

REACTIONS (1)
  - Asthma [Recovered/Resolved]

NARRATIVE: CASE EVENT DATE: 20150120
